FAERS Safety Report 4825355-5 (Version None)
Quarter: 2005Q4

REPORT INFORMATION
  Report Type: 
  Country: None (occurrence: None)
  Receive Date: 20051111
  Receipt Date: 20051104
  Transmission Date: 20060501
  Serious: Yes (Other)
  Sender: FDA-Public Use
  Company Number: JP-ROCHE-423932

PATIENT
  Age: 52 Year
  Sex: Male

DRUGS (3)
  1. ROCEPHIN [Suspect]
     Indication: INFECTION
     Route: 041
     Dates: start: 20051025, end: 20051025
  2. NEO-MINOPHAGEN C [Concomitant]
     Route: 042
  3. NEUROTROPIN [Concomitant]
     Route: 042

REACTIONS (1)
  - SHOCK [None]
